FAERS Safety Report 15978334 (Version 1)
Quarter: 2019Q1

REPORT INFORMATION
  Report Type: Spontaneous
  Country: CA (occurrence: CA)
  Receive Date: 20190219
  Receipt Date: 20190219
  Transmission Date: 20190418
  Serious: Yes (Hospitalization, Disabling)
  Sender: FDA-Public Use
  Company Number: CA-009507513-1902CAN006377

PATIENT
  Age: 59 Year
  Sex: Male
  Weight: 70 kg

DRUGS (13)
  1. PREVYMIS [Suspect]
     Active Substance: LETERMOVIR
     Indication: CYTOMEGALOVIRUS VIRAEMIA
     Dosage: 240 MILLIGRAM, 1 EVERY 1 DAY(S)
     Route: 048
  2. MIRTAZAPINE. [Concomitant]
     Active Substance: MIRTAZAPINE
     Dosage: UNK
  3. HYDROMORPHONE [Concomitant]
     Active Substance: HYDROMORPHONE
     Dosage: UNK
  4. AMLODIPINE [Concomitant]
     Active Substance: AMLODIPINE BESYLATE
     Dosage: UNK
  5. METOCLOPRAMIDE. [Concomitant]
     Active Substance: METOCLOPRAMIDE
     Dosage: UNK
  6. PREDNISONE. [Concomitant]
     Active Substance: PREDNISONE
     Dosage: UNK
  7. FOSCAVIR [Concomitant]
     Active Substance: FOSCARNET SODIUM
     Dosage: UNK
     Route: 042
  8. CYCLOSPORINE. [Concomitant]
     Active Substance: CYCLOSPORINE
     Dosage: UNK
  9. GABAPENTIN. [Concomitant]
     Active Substance: GABAPENTIN
     Dosage: UNK
  10. LEVOTHYROXINE SODIUM. [Concomitant]
     Active Substance: LEVOTHYROXINE SODIUM
     Dosage: UNK
  11. METOPROLOL. [Concomitant]
     Active Substance: METOPROLOL
     Dosage: UNK
  12. TINZAPARIN SODIUM [Concomitant]
     Active Substance: TINZAPARIN SODIUM
     Dosage: UNK
  13. SEPTRA [Concomitant]
     Active Substance: SULFAMETHOXAZOLE\TRIMETHOPRIM
     Dosage: UNK
     Route: 042

REACTIONS (9)
  - Gait inability [Recovering/Resolving]
  - Sensory disturbance [Recovering/Resolving]
  - Muscular weakness [Recovering/Resolving]
  - Neuropathy peripheral [Recovering/Resolving]
  - Bedridden [Recovering/Resolving]
  - Hyporeflexia [Recovering/Resolving]
  - Dysstasia [Recovering/Resolving]
  - Diffuse axonal injury [Recovering/Resolving]
  - Guillain-Barre syndrome [Recovering/Resolving]
